FAERS Safety Report 5457419-X (Version None)
Quarter: 2007Q3

REPORT INFORMATION
  Report Type: 
  Country: None (occurrence: None)
  Receive Date: 20070918
  Receipt Date: 20070522
  Transmission Date: 20080115
  Serious: No
  Sender: FDA-Public Use
  Company Number: US-ASTRAZENECA-2007UW03849

PATIENT
  Age: 8080 Day
  Sex: Male
  Weight: 90 kg

DRUGS (2)
  1. SEROQUEL [Suspect]
     Indication: PSYCHOTIC DISORDER
     Route: 048
     Dates: start: 20060821
  2. SEROQUEL [Suspect]
     Route: 048

REACTIONS (1)
  - ALOPECIA [None]
